FAERS Safety Report 7296227-4 (Version None)
Quarter: 2011Q1

REPORT INFORMATION
  Report Type: 
  Country: None (occurrence: None)
  Receive Date: 20110204
  Receipt Date: 20110119
  Transmission Date: 20110831
  Serious: Yes (Hospitalization)
  Sender: FDA-Public Use
  Company Number: DSA_42088_2009

PATIENT
  Sex: Male

DRUGS (9)
  1. AMLODIPINE BESYLATE [Suspect]
     Indication: SUICIDE ATTEMPT
     Dosage: (NOT THE PRESCRIBED AMOUNT ORAL)
     Route: 048
  2. TAVOR /00273201/ (TAVOR-LORAZEPAM) [Suspect]
     Indication: SUICIDE ATTEMPT
     Dosage: (NOT THE PRESCRIBED AMOUNT ORAL)
     Route: 048
  3. TRANXILLIUM (TRANXILIUM-CLORAZEPATE DIPOTASSIUM) (NOT SPECIFIED) [Suspect]
     Indication: SUICIDE ATTEMPT
     Dosage: (NOT THE PRESCRIBED AMOUNT ORAL)
     Route: 048
  4. FLUOXETINE [Suspect]
     Indication: SUICIDE ATTEMPT
     Dosage: (NOT THE PRESCRIBED AMOUNT ORAL)
     Route: 048
  5. DILTIAZEM HCL [Suspect]
     Indication: SUICIDE ATTEMPT
     Dosage: (NOT THE PRESCRIBED AMOUNT ORAL)
     Route: 048
  6. PROMETHAZINE [Suspect]
     Indication: SUICIDE ATTEMPT
     Dosage: (NOT THE PRESCRIBED AMOUNT ORAL)
     Route: 048
  7. CO-DIOVANE (CO-DIOVANE-HYDROCHLOROTHIAZIDE/VALSARTAN) (NOT SPECIFIED) [Suspect]
     Indication: SUICIDE ATTEMPT
     Dosage: (NOT THE PRESCRIBED AMOUNT ORAL)
     Route: 048
  8. TIMONIL (TIMONIL-CARBAMAZEPINE) (NOT SPECIFIED) [Suspect]
     Indication: SUICIDE ATTEMPT
     Dosage: (NOT THE PRESCRIBED AMOUNT ORAL)
     Route: 048
  9. LYRICA [Suspect]
     Indication: SUICIDE ATTEMPT
     Dosage: (NOT THE PREACRIBED AMOUNT ORAL)
     Route: 048

REACTIONS (5)
  - GASTROINTESTINAL SOUNDS ABNORMAL [None]
  - SOMNOLENCE [None]
  - SUICIDE ATTEMPT [None]
  - BLOOD POTASSIUM DECREASED [None]
  - INTENTIONAL SELF-INJURY [None]
